FAERS Safety Report 11002875 (Version 4)
Quarter: 2015Q2

REPORT INFORMATION
  Report Type: Report from Study
  Country: ES (occurrence: ES)
  Receive Date: 20150408
  Receipt Date: 20150619
  Transmission Date: 20150821
  Serious: Yes (Other)
  Sender: FDA-Public Use
  Company Number: ES-TEVA-529882USA

PATIENT
  Age: 41 Year
  Sex: Female

DRUGS (12)
  1. BENDAMUSTINE HYDROCHLORIDE [Suspect]
     Active Substance: BENDAMUSTINE HYDROCHLORIDE
     Dosage: 90 MG/M2, CYCLIC, EACH 28 DAYS, CYCLE 4
     Route: 042
     Dates: start: 20140901
  2. BENDAMUSTINE HYDROCHLORIDE [Suspect]
     Active Substance: BENDAMUSTINE HYDROCHLORIDE
     Dosage: 90 MG/M2, CYCLIC, EACH 28 DAYS, CYCLE 5
     Route: 042
     Dates: start: 20140929
  3. RITUXIMAB [Suspect]
     Active Substance: RITUXIMAB
     Dosage: 375 MG/M2, CYCLIC, EACH 28 DAYS, CYCLE 4
     Route: 065
     Dates: start: 20140901
  4. BENDAMUSTINE HYDROCHLORIDE [Suspect]
     Active Substance: BENDAMUSTINE HYDROCHLORIDE
     Indication: B-CELL LYMPHOMA
     Dosage: 90 MG/M2, CYCLIC (CYCLE 1)
     Route: 042
     Dates: start: 20140609
  5. BENDAMUSTINE HYDROCHLORIDE [Suspect]
     Active Substance: BENDAMUSTINE HYDROCHLORIDE
     Dosage: 90 MG/M2, CYCLIC, EACH 28 DAYS, CYCLE 2
     Route: 042
     Dates: start: 20140707
  6. RITUXIMAB [Suspect]
     Active Substance: RITUXIMAB
     Dosage: 375 MG/M2, CYCLIC (CYCLE 1)
     Route: 065
     Dates: start: 20140609
  7. BENDAMUSTINE HYDROCHLORIDE [Suspect]
     Active Substance: BENDAMUSTINE HYDROCHLORIDE
     Dosage: 90 MG/M2, CYCLIC, EACH 28 DAYS, CYCLE 6
     Route: 042
     Dates: start: 20141027
  8. RITUXIMAB [Suspect]
     Active Substance: RITUXIMAB
     Indication: B-CELL LYMPHOMA
     Dosage: 375 MG/M2, CYCLIC, EACH 28 DAYS, CYCLE 2
     Route: 065
     Dates: start: 20140707
  9. RITUXIMAB [Suspect]
     Active Substance: RITUXIMAB
     Dosage: 375 MG/M2, CYCLIC, EACH 28 DAYS, CYCLE 3
     Route: 065
     Dates: start: 20140804
  10. BENDAMUSTINE HYDROCHLORIDE [Suspect]
     Active Substance: BENDAMUSTINE HYDROCHLORIDE
     Dosage: 90 MG/M2, CYCLIC, EACH 28 DAYS, CYCLE 3
     Route: 042
     Dates: start: 20140804
  11. RITUXIMAB [Suspect]
     Active Substance: RITUXIMAB
     Dosage: 375 MG/M2, CYCLIC, EACH 28 DAYS, CYCLE 5
     Route: 065
     Dates: start: 20140929
  12. RITUXIMAB [Suspect]
     Active Substance: RITUXIMAB
     Dosage: 375 MG/M2, CYCLIC, EACH 28 DAYS, CYCLE 6
     Route: 065
     Dates: start: 20141027

REACTIONS (7)
  - Leukopenia [Recovered/Resolved]
  - Neutropenia [Recovered/Resolved]
  - Anaemia [Recovered/Resolved]
  - Deep vein thrombosis [Recovered/Resolved]
  - Fatigue [Recovered/Resolved]
  - Nausea [Recovered/Resolved]
  - Paraesthesia [Recovered/Resolved]

NARRATIVE: CASE EVENT DATE: 20140609
